FAERS Safety Report 6976765-1 (Version None)
Quarter: 2010Q3

REPORT INFORMATION
  Report Type: 
  Country: None (occurrence: None)
  Receive Date: 20100910
  Receipt Date: 20100907
  Transmission Date: 20110219
  Serious: Yes (Death)
  Sender: FDA-Public Use
  Company Number: PHHO2009DE04911

PATIENT
  Sex: Male

DRUGS (4)
  1. SIMULECT [Suspect]
     Indication: LIVER TRANSPLANT
     Dosage: 20 MG, ONCE/SINGLE
     Route: 042
     Dates: start: 20090304
  2. SIMULECT [Suspect]
     Dosage: 20 MG, ONCE/SINGLE
     Route: 042
     Dates: start: 20090308
  3. CYCLOSPORINE [Concomitant]
     Indication: LIVER TRANSPLANT
  4. NO TREATMENT RECEIVED NOMED [Suspect]
     Indication: LIVER TRANSPLANT

REACTIONS (17)
  - ASPERGILLOSIS [None]
  - BACTERIAL INFECTION [None]
  - BRONCHIAL HAEMORRHAGE [None]
  - CANDIDA SEPSIS [None]
  - CHOLANGITIS [None]
  - COAGULOPATHY [None]
  - COMPLICATIONS OF TRANSPLANTED LIVER [None]
  - ILEUS PARALYTIC [None]
  - LAPAROTOMY [None]
  - LIVER ABSCESS [None]
  - MULTI-ORGAN FAILURE [None]
  - PNEUMONIA [None]
  - PSEUDOMONAL SEPSIS [None]
  - PSEUDOMONAS INFECTION [None]
  - RENAL FAILURE [None]
  - RETROPERITONEAL HAEMATOMA [None]
  - STAPHYLOCOCCAL INFECTION [None]
